FAERS Safety Report 25935142 (Version 1)
Quarter: 2025Q4

REPORT INFORMATION
  Report Type: Spontaneous
  Country: US (occurrence: None)
  Receive Date: 20251016
  Receipt Date: 20251016
  Transmission Date: 20260117
  Serious: Yes (Hospitalization)
  Sender: FDA-CTU
  Company Number: None

PATIENT
  Age: 61 Year
  Sex: Female
  Weight: 3.4 kg

DRUGS (7)
  1. SODIUM FLUORIDE [Suspect]
     Active Substance: SODIUM FLUORIDE
     Indication: Dental caries
     Dosage: FREQUENCY : AT BEDTIME;?OTHER ROUTE : BRUSHING NO SWALLOWING OR RINSING;?OTHER STRENGTH:  5000PPM?
     Route: 050
     Dates: start: 20250912, end: 20251016
  2. POMALYST [Concomitant]
     Active Substance: POMALIDOMIDE
  3. Xarelto 2mg [Concomitant]
  4. LOSARTAN [Concomitant]
     Active Substance: LOSARTAN
  5. ACYCLOVIR [Concomitant]
     Active Substance: ACYCLOVIR
  6. Vitamin D3 2000mg (2) gummies a day [Concomitant]
  7. Woman^s Alive 50+ gummies (2) a day [Concomitant]

REACTIONS (4)
  - Urticaria [None]
  - Therapy cessation [None]
  - Mouth swelling [None]
  - Swelling face [None]

NARRATIVE: CASE EVENT DATE: 20250912
